FAERS Safety Report 5326300-9 (Version None)
Quarter: 2007Q2

REPORT INFORMATION
  Report Type: 
  Country: None (occurrence: None)
  Receive Date: 20070516
  Receipt Date: 20070507
  Transmission Date: 20071010
  Serious: Yes (Hospitalization, Disabling, Other)
  Sender: FDA-Public Use
  Company Number: FR-GENENTECH-237481

PATIENT
  Sex: Female
  Weight: 36.281 kg

DRUGS (5)
  1. XOLAIR [Suspect]
     Indication: ASTHMA
     Dosage: 225 MG, 2/WEEK
     Route: 058
  2. SOLUPRED [Concomitant]
     Indication: DRUG USE FOR UNKNOWN INDICATION
     Dosage: 40 MG, UNK
  3. PULMICORT [Concomitant]
     Indication: DRUG USE FOR UNKNOWN INDICATION
  4. BRICANYL [Concomitant]
     Indication: DRUG USE FOR UNKNOWN INDICATION
  5. BAMBUTEROL [Concomitant]
     Indication: DRUG USE FOR UNKNOWN INDICATION

REACTIONS (2)
  - PHARYNGITIS [None]
  - POLYARTHRITIS [None]
